FAERS Safety Report 24264993 (Version 1)
Quarter: 2024Q3

REPORT INFORMATION
  Report Type: Spontaneous
  Country: US (occurrence: US)
  Receive Date: 20240829
  Receipt Date: 20240829
  Transmission Date: 20241016
  Serious: No
  Sender: AKCEA THERAPEUTICS
  Company Number: US-AKCEA THERAPEUTICS, INC.-2024IS002795

PATIENT

DRUGS (2)
  1. TEGSEDI [Suspect]
     Active Substance: INOTERSEN SODIUM
     Indication: Hereditary neuropathic amyloidosis
     Dosage: 284 MILLIGRAM, QW (WEEKLY)
     Route: 058
  2. TEGSEDI [Suspect]
     Active Substance: INOTERSEN SODIUM
     Dosage: 284 MILLIGRAM, QW (WEEKLY)
     Route: 058
     Dates: start: 20190426, end: 202011

REACTIONS (16)
  - Urine protein/creatinine ratio increased [Not Recovered/Not Resolved]
  - Urine abnormality [Not Recovered/Not Resolved]
  - White blood cells urine positive [Not Recovered/Not Resolved]
  - White blood cells urine positive [Not Recovered/Not Resolved]
  - Bacterial test positive [Not Recovered/Not Resolved]
  - Urinary sediment present [Not Recovered/Not Resolved]
  - Urinary casts [Unknown]
  - Protein urine present [Unknown]
  - pH urine increased [Unknown]
  - Urinary occult blood positive [Not Recovered/Not Resolved]
  - Crystal urine present [Unknown]
  - Nitrite urine present [Unknown]
  - Red blood cells urine positive [Unknown]
  - Platelet count increased [Unknown]
  - Bladder catheterisation [Unknown]
  - Blood creatinine abnormal [Unknown]

NARRATIVE: CASE EVENT DATE: 20200901
